FAERS Safety Report 23803342 (Version 1)
Quarter: 2024Q2

REPORT INFORMATION
  Report Type: Spontaneous
  Country: US (occurrence: None)
  Receive Date: 20240430
  Receipt Date: 20240430
  Transmission Date: 20240716
  Serious: No
  Sender: FDA-Public Use
  Company Number: None

PATIENT
  Age: 66 Year
  Sex: Female
  Weight: 49.5 kg

DRUGS (6)
  1. QULIPTA [Suspect]
     Active Substance: ATOGEPANT
     Indication: Migraine
     Dosage: OTHER QUANTITY : 30 TABLET(S);?FREQUENCY : DAILY;?
     Route: 048
     Dates: start: 20240430, end: 20240430
  2. MYRBETRIQ [Concomitant]
     Active Substance: MIRABEGRON
  3. ROPINIROLE [Concomitant]
     Active Substance: ROPINIROLE
  4. RAMELTEON [Concomitant]
  5. trazodonr [Concomitant]
  6. EXCEDRIN MIGRAINE [Concomitant]

REACTIONS (3)
  - Vomiting [None]
  - Tremor [None]
  - Economic problem [None]

NARRATIVE: CASE EVENT DATE: 20240430
